FAERS Safety Report 9281144 (Version 7)
Quarter: 2013Q4

REPORT INFORMATION
  Report Type: Report from Study
  Country: JP (occurrence: JP)
  Receive Date: 20130509
  Receipt Date: 20131028
  Transmission Date: 20140711
  Serious: Yes (Other)
  Sender: FDA-Public Use
  Company Number: JP-JNJFOC-20130501371

PATIENT
  Age: 62 Year
  Sex: Male

DRUGS (10)
  1. USTEKINUMAB [Suspect]
     Indication: PSORIASIS
     Route: 058
     Dates: start: 20121030, end: 20121030
  2. USTEKINUMAB [Suspect]
     Indication: PSORIASIS
     Route: 058
     Dates: start: 20121002, end: 20121002
  3. USTEKINUMAB [Suspect]
     Indication: PSORIASIS
     Route: 058
     Dates: start: 20130122, end: 20130122
  4. USTEKINUMAB [Suspect]
     Indication: PSORIASIS
     Route: 058
     Dates: start: 20130709, end: 20130709
  5. USTEKINUMAB [Suspect]
     Indication: PSORIASIS
     Route: 058
     Dates: start: 20131001
  6. USTEKINUMAB [Suspect]
     Indication: PSORIASIS
     Route: 058
     Dates: start: 20130416, end: 20130416
  7. ISCOTIN [Suspect]
     Indication: PROPHYLAXIS
     Route: 048
     Dates: start: 20120927, end: 20121030
  8. OXSORALEN [Concomitant]
     Indication: PSORIASIS
     Route: 061
     Dates: end: 201210
  9. REZALTAS [Concomitant]
     Route: 048
     Dates: start: 20111108
  10. ANTEBATE [Concomitant]
     Indication: PSORIASIS
     Route: 061
     Dates: start: 20111108

REACTIONS (1)
  - Liver disorder [Not Recovered/Not Resolved]
